FAERS Safety Report 9772515 (Version 2)
Quarter: 2014Q4

REPORT INFORMATION
  Report Type: Spontaneous
  Country: US (occurrence: None)
  Receive Date: 20131218
  Receipt Date: 20141217
  Transmission Date: 20150529
  Serious: Yes (Other)
  Sender: FDA-Public Use
  Company Number: 2013CT000093

PATIENT
  Age: 27 Year
  Sex: Female

DRUGS (4)
  1. KORLYM [Suspect]
     Active Substance: MIFEPRISTONE
     Indication: PITUITARY-DEPENDENT CUSHING^S SYNDROME
     Dates: start: 20131018, end: 20131028
  2. DESMOPRESSIN [Concomitant]
     Active Substance: DESMOPRESSIN
  3. METFORMIN [Concomitant]
     Active Substance: METFORMIN HYDROCHLORIDE
  4. BP MEDS COMBO [Concomitant]

REACTIONS (5)
  - Swelling face [None]
  - Periorbital oedema [None]
  - Urticaria [None]
  - Rash [None]
  - Blood potassium decreased [None]

NARRATIVE: CASE EVENT DATE: 20131027
